FAERS Safety Report 8818849 (Version 2)
Quarter: 2019Q3

REPORT INFORMATION
  Report Type: Spontaneous
  Country: FR (occurrence: FR)
  Receive Date: 20121002
  Receipt Date: 20190924
  Transmission Date: 20191005
  Serious: Yes (Hospitalization)
  Sender: FDA-Public Use
  Company Number: FR-009507513-1202USA01822

PATIENT
  Age: 58 Year
  Sex: Female

DRUGS (6)
  1. EUPANTOL [Suspect]
     Active Substance: PANTOPRAZOLE SODIUM
     Dosage: UNK MG, UNK
     Route: 048
     Dates: end: 20111112
  2. EMEND [Suspect]
     Active Substance: APREPITANT
     Route: 048
     Dates: start: 20111017, end: 20111026
  3. AERIUS (DESLORATADINE) [Suspect]
     Active Substance: DESLORATADINE
     Dates: start: 20111014, end: 20111030
  4. DOMPERIDONE [Suspect]
     Active Substance: DOMPERIDONE
     Dosage: 1 DF, BID
     Route: 048
     Dates: end: 20111112
  5. PLITICAN [Suspect]
     Active Substance: ALIZAPRIDE HYDROCHLORIDE
     Route: 042
     Dates: start: 20111017, end: 20111107
  6. ONDANSETRON [Suspect]
     Active Substance: ONDANSETRON
     Dates: start: 20111017, end: 20111026

REACTIONS (3)
  - Pruritus [Recovered/Resolved]
  - Rash erythematous [Recovered/Resolved]
  - Blister [Recovered/Resolved]

NARRATIVE: CASE EVENT DATE: 20111025
